FAERS Safety Report 8667332 (Version 2)
Quarter: 2012Q4

REPORT INFORMATION
  Report Type: 
  Country: US (occurrence: US)
  Receive Date: 20120717
  Receipt Date: 20121213
  Transmission Date: 20130627
  Serious: Yes (Hospitalization, Other)
  Sender: FDA-Public Use
  Company Number: US-BAYER-2012-069255

PATIENT
  Age: 21 Year
  Sex: Female
  Weight: 71.66 kg

DRUGS (7)
  1. MIRENA [Suspect]
     Indication: CONTRACEPTION
     Dosage: 20 mcg/24hr, CONT
     Route: 015
     Dates: start: 20120202, end: 20120522
  2. ALBUTEROL [Concomitant]
     Indication: ASTHMA
     Dosage: UNK
     Dates: start: 1998
  3. NASONEX [Concomitant]
     Indication: ALLERGY NOS
     Dosage: 2 DF, PRN
     Dates: start: 2002
  4. IPRATROPIUM BROMIDE [Concomitant]
     Indication: MULTIPLE ALLERGIES
     Dosage: 2 DF, PRN
     Dates: start: 2002
  5. ADVAIR [Concomitant]
     Indication: ASTHMA
     Dosage: 1 daily
     Dates: start: 2004
  6. SINGULAIR [Concomitant]
     Indication: ASTHMA
     Dosage: UNK
     Dates: start: 2002
  7. SINGULAIR [Concomitant]
     Indication: ALLERGY NOS

REACTIONS (3)
  - Fallopian tube cyst [None]
  - Ovarian cyst [None]
  - Abdominal pain [Not Recovered/Not Resolved]
